FAERS Safety Report 9138297 (Version 1)
Quarter: 2013Q1

REPORT INFORMATION
  Report Type: Report from Study
  Country: US (occurrence: US)
  Receive Date: 20130305
  Receipt Date: 20130305
  Transmission Date: 20140127
  Serious: Yes (Hospitalization)
  Sender: FDA-Public Use
  Company Number: US-MERCK-1302USA011950

PATIENT
  Age: 47 Year
  Sex: Male
  Weight: 88.89 kg

DRUGS (6)
  1. DEXAMETHASONE [Suspect]
     Indication: PLASMA CELL MYELOMA
     Dosage: 40 MG, DAY 1, 8, 15
     Route: 042
  2. DEXAMETHASONE [Suspect]
     Indication: PLASMA CELL MYELOMA
     Dosage: 40 MG, DAY 22
     Route: 048
  3. CARFILZOMIB [Suspect]
     Indication: PLASMA CELL MYELOMA
     Dosage: 20 MG/M2, DAYS 1, 2
  4. CARFILZOMIB [Suspect]
     Dosage: 27 MG/M2, DAYS 8, 9, 15, 16
  5. VORINOSTAT [Suspect]
     Indication: PLASMA CELL MYELOMA
     Dosage: 300 MG, DAYS 1-7 AND 15-21
     Route: 048
  6. LENALIDOMIDE [Suspect]
     Indication: PLASMA CELL MYELOMA
     Dosage: 25 MG, DAYS 1-21

REACTIONS (1)
  - Infection [Unknown]
